FAERS Safety Report 24918235 (Version 2)
Quarter: 2025Q2

REPORT INFORMATION
  Report Type: Report from Study
  Country: US (occurrence: US)
  Receive Date: 20250203
  Receipt Date: 20250411
  Transmission Date: 20250716
  Serious: No
  Sender: ABBVIE
  Company Number: US-ABBVIE-6107440

PATIENT
  Age: 65 Year
  Sex: Female

DRUGS (1)
  1. UPADACITINIB [Suspect]
     Active Substance: UPADACITINIB
     Indication: Rheumatoid arthritis
     Route: 048
     Dates: start: 20241219

REACTIONS (9)
  - Grip strength decreased [Unknown]
  - Musculoskeletal discomfort [Unknown]
  - Rash [Unknown]
  - Rash papular [Unknown]
  - Cough [Unknown]
  - Arthralgia [Unknown]
  - Pain in extremity [Unknown]
  - Asthenia [Unknown]
  - Acne [Unknown]

NARRATIVE: CASE EVENT DATE: 20250201
